FAERS Safety Report 20214063 (Version 1)
Quarter: 2021Q4

REPORT INFORMATION
  Report Type: Spontaneous
  Country: US (occurrence: None)
  Receive Date: 20211221
  Receipt Date: 20211221
  Transmission Date: 20220303
  Serious: No
  Sender: FDA-Public Use
  Company Number: None

PATIENT
  Sex: Female

DRUGS (1)
  1. STELARA [Suspect]
     Active Substance: USTEKINUMAB
     Indication: Colitis ulcerative
     Dosage: OTHER FREQUENCY : Q 8 WEEKS;?
     Route: 058
     Dates: start: 202108

REACTIONS (4)
  - Headache [None]
  - Pain [None]
  - Drug ineffective [None]
  - Gastrointestinal disorder [None]
